FAERS Safety Report 10818852 (Version 3)
Quarter: 2015Q1

REPORT INFORMATION
  Report Type: Spontaneous
  Country: US (occurrence: US)
  Receive Date: 20150218
  Receipt Date: 20150313
  Transmission Date: 20150721
  Serious: No
  Sender: FDA-Public Use
  Company Number: US-PFIZER INC-2015058869

PATIENT
  Age: 28 Year
  Sex: Male

DRUGS (3)
  1. LYRICA [Suspect]
     Active Substance: PREGABALIN
     Indication: PAIN IN EXTREMITY
  2. CLARITIN [Concomitant]
     Active Substance: LORATADINE
     Dosage: 10 MG, UNK
  3. LYRICA [Suspect]
     Active Substance: PREGABALIN
     Indication: BACK PAIN
     Dosage: 75 MG, 2X/DAY
     Route: 048
     Dates: start: 20150128

REACTIONS (1)
  - Opiates positive [Unknown]
